FAERS Safety Report 21601630 (Version 1)
Quarter: 2022Q4

REPORT INFORMATION
  Report Type: Spontaneous
  Country: US (occurrence: US)
  Receive Date: 20221116
  Receipt Date: 20221116
  Transmission Date: 20230113
  Serious: Yes (Other)
  Sender: FDA-Public Use
  Company Number: US-SUN PHARMACEUTICAL INDUSTRIES LTD-2022R1-363672

PATIENT
  Age: 36 Month
  Sex: Male

DRUGS (3)
  1. IRINOTECAN [Suspect]
     Active Substance: IRINOTECAN
     Indication: Product used for unknown indication
     Dosage: UNK
     Route: 065
  2. TEMOZOLOMIDE [Suspect]
     Active Substance: TEMOZOLOMIDE
     Indication: Product used for unknown indication
     Dosage: UNK
     Route: 065
  3. PEVONEDISTAT [Suspect]
     Active Substance: PEVONEDISTAT
     Indication: Product used for unknown indication
     Dosage: UNK
     Route: 065

REACTIONS (1)
  - Disease progression [Unknown]
